FAERS Safety Report 19837167 (Version 2)
Quarter: 2021Q3

REPORT INFORMATION
  Report Type: Spontaneous
  Country: JP (occurrence: JP)
  Receive Date: 20210914
  Receipt Date: 20210921
  Transmission Date: 20211014
  Serious: Yes (Life-Threatening, Hospitalization, Other)
  Sender: FDA-Public Use
  Company Number: JP-009507513-2109JPN000355J

PATIENT
  Age: 65 Year
  Sex: Male

DRUGS (21)
  1. KCL CORRECTIVE [Concomitant]
     Route: 051
  2. OMEPRAZOLE SODIUM [Concomitant]
     Active Substance: OMEPRAZOLE SODIUM
     Route: 051
  3. BOLHEAL [Concomitant]
     Active Substance: FACTOR XIII CONCENTRATE (HUMAN)\FIBRINOGEN HUMAN\THROMBIN HUMAN
     Route: 065
  4. TRANEXAMIC ACID. [Concomitant]
     Active Substance: TRANEXAMIC ACID
     Route: 051
  5. CALCICOL [Concomitant]
     Active Substance: CALCIUM GLUCONATE
     Route: 051
  6. BRIDION [Suspect]
     Active Substance: SUGAMMADEX
     Indication: NEUROMUSCULAR BLOCKADE REVERSAL
     Dosage: 2 MILLIGRAM/KILOGRAM
     Route: 042
     Dates: start: 20180805, end: 20210805
  7. ROCURONIUM BROMIDE. [Concomitant]
     Active Substance: ROCURONIUM BROMIDE
     Dosage: 165 MILLIGRAM
     Route: 065
     Dates: start: 20210805, end: 20210805
  8. CEFAZOLIN SODIUM. [Concomitant]
     Active Substance: CEFAZOLIN SODIUM
     Route: 051
  9. REMIFENTANIL [REMIFENTANIL HYDROCHLORIDE] [Concomitant]
     Active Substance: REMIFENTANIL HYDROCHLORIDE
     Route: 042
  10. DEXMEDETOMIDINE [DEXMEDETOMIDINE HYDROCHLORIDE] [Concomitant]
     Active Substance: DEXMEDETOMIDINE HYDROCHLORIDE
     Route: 042
  11. PROPOFOL. [Concomitant]
     Active Substance: PROPOFOL
     Route: 042
  12. HEPARIN [Concomitant]
     Active Substance: HEPARIN SODIUM
     Route: 051
  13. ACELIO [Concomitant]
     Active Substance: ACETAMINOPHEN
     Route: 042
  14. SOLULACT [Concomitant]
     Active Substance: CALCIUM CHLORIDE\POTASSIUM CHLORIDE\SODIUM CHLORIDE\SODIUM LACTATE
     Route: 051
  15. ALBUMINAR [Concomitant]
     Active Substance: ALBUMIN HUMAN
     Route: 065
  16. FENTANYL [FENTANYL CITRATE] [Concomitant]
     Active Substance: FENTANYL CITRATE
     Route: 051
  17. SOSEGON [PENTAZOCINE HYDROCHLORIDE] [Concomitant]
     Route: 051
  18. HUMULIN R [Concomitant]
     Active Substance: INSULIN HUMAN
     Route: 051
  19. DOBUPUM [Concomitant]
     Active Substance: DOBUTAMINE HYDROCHLORIDE
     Route: 051
  20. CARBAZOCHROME SULFONATE NA [Concomitant]
     Route: 042
  21. NOREPINEPHRINE. [Concomitant]
     Active Substance: NOREPINEPHRINE
     Route: 051

REACTIONS (1)
  - Anaphylactic shock [Recovered/Resolved]

NARRATIVE: CASE EVENT DATE: 20210805
